FAERS Safety Report 7391575-1 (Version None)
Quarter: 2011Q2

REPORT INFORMATION
  Report Type: 
  Country: None (occurrence: None)
  Receive Date: 20110404
  Receipt Date: 20110322
  Transmission Date: 20111010
  Serious: Yes (Other)
  Sender: FDA-Public Use
  Company Number: PHHO2011US02566

PATIENT
  Sex: Female
  Weight: 56.7 kg

DRUGS (3)
  1. VITAMIN D [Concomitant]
  2. CALCIUM [Concomitant]
  3. ZOLEDRONIC ACID [Suspect]
     Indication: BREAST CANCER
     Dosage: 4 MG, UNK
     Route: 042
     Dates: start: 20081222, end: 20100408

REACTIONS (3)
  - OSTEONECROSIS OF JAW [None]
  - TOOTH EXTRACTION [None]
  - IMPAIRED HEALING [None]
